FAERS Safety Report 14055063 (Version 2)
Quarter: 2017Q4

REPORT INFORMATION
  Report Type: Spontaneous
  Country: AT (occurrence: AT)
  Receive Date: 20171006
  Receipt Date: 20171229
  Transmission Date: 20180321
  Serious: Yes (Other)
  Sender: FDA-Public Use
  Company Number: AT-ASTRAZENECA-2017SF00852

PATIENT
  Age: 82 Year
  Sex: Female
  Weight: 84 kg

DRUGS (16)
  1. SEROQUEL [Suspect]
     Active Substance: QUETIAPINE FUMARATE
     Dosage: 25-75 MG
     Route: 048
     Dates: start: 20170328, end: 20170329
  2. TEMESTA (LORAZEPAM) [Suspect]
     Active Substance: LORAZEPAM
     Route: 065
     Dates: start: 20170331, end: 20170331
  3. SEROQUEL [Suspect]
     Active Substance: QUETIAPINE FUMARATE
     Dosage: 225 MG
     Route: 048
     Dates: start: 20170331, end: 20170401
  4. EXFORGE HCT [Suspect]
     Active Substance: AMLODIPINE BESYLATE\HYDROCHLOROTHIAZIDE\VALSARTAN
     Dosage: 1.0DF UNKNOWN
     Route: 065
     Dates: end: 20170331
  5. NALBUPHINE [Suspect]
     Active Substance: NALBUPHINE
     Route: 065
     Dates: start: 20170330, end: 20170330
  6. TEMESTA (LORAZEPAM) [Suspect]
     Active Substance: LORAZEPAM
     Route: 065
     Dates: start: 20170401, end: 20170402
  7. CONCOR [Suspect]
     Active Substance: BISOPROLOL FUMARATE
     Route: 065
     Dates: end: 20170331
  8. FOLSAN [Concomitant]
     Active Substance: FOLIC ACID
  9. DAFLON [Concomitant]
     Active Substance: DIOSMIN\HESPERIDIN
  10. DIGIMERCK [Concomitant]
     Active Substance: DIGITOXIN
     Dosage: 0.07 MG, (PAUSE SAT AND SUN)
  11. SEROQUEL [Suspect]
     Active Substance: QUETIAPINE FUMARATE
     Route: 048
  12. TEMESTA (LORAZEPAM) [Suspect]
     Active Substance: LORAZEPAM
     Route: 065
     Dates: start: 20170406, end: 20170408
  13. ELIQUIS [Concomitant]
     Active Substance: APIXABAN
  14. NALBUPHINE [Suspect]
     Active Substance: NALBUPHINE
     Route: 065
     Dates: start: 20170403, end: 20170403
  15. PANTOLOC [Concomitant]
     Active Substance: PANTOPRAZOLE SODIUM
  16. TRITTICO RET [Concomitant]
     Dates: start: 20170331

REACTIONS (4)
  - Hypotonia [Recovered/Resolved]
  - Dizziness [Recovered/Resolved]
  - Hypotension [Recovered/Resolved]
  - Urinary retention [Unknown]

NARRATIVE: CASE EVENT DATE: 20170331
